FAERS Safety Report 25203321 (Version 3)
Quarter: 2025Q2

REPORT INFORMATION
  Report Type: Spontaneous
  Country: BR (occurrence: BR)
  Receive Date: 20250416
  Receipt Date: 20250430
  Transmission Date: 20250717
  Serious: Yes (Other)
  Sender: TEVA
  Company Number: BR-TEVA-VS-3320140

PATIENT
  Age: 48 Year
  Sex: Female

DRUGS (1)
  1. COPAXONE [Suspect]
     Active Substance: GLATIRAMER ACETATE
     Indication: Multiple sclerosis
     Route: 065
     Dates: start: 20170612, end: 202504

REACTIONS (14)
  - Injection site necrosis [Not Recovered/Not Resolved]
  - Anaphylactic reaction [Recovering/Resolving]
  - Injection site cellulitis [Unknown]
  - Nausea [Recovered/Resolved]
  - Dyspnoea [Recovered/Resolved]
  - Urinary incontinence [Recovered/Resolved]
  - Injection site erythema [Not Recovered/Not Resolved]
  - Injection site pain [Not Recovered/Not Resolved]
  - Skin burning sensation [Recovered/Resolved]
  - Hypotension [Recovered/Resolved]
  - Injection site swelling [Not Recovered/Not Resolved]
  - Anal incontinence [Recovered/Resolved]
  - Loss of consciousness [Recovered/Resolved]
  - Skin infection [Unknown]

NARRATIVE: CASE EVENT DATE: 20250401
